FAERS Safety Report 7764405-3 (Version None)
Quarter: 2011Q3

REPORT INFORMATION
  Report Type: 
  Country: None (occurrence: None)
  Receive Date: 20110921
  Receipt Date: 20110914
  Transmission Date: 20111222
  Serious: No
  Sender: FDA-Public Use
  Company Number: AU-B.I. PHARMACEUTICALS,INC./RIDGEFIELD-2011-AU-00533AU

PATIENT
  Sex: Male
  Weight: 108 kg

DRUGS (14)
  1. BISOPROLOL FUMARATE [Concomitant]
     Dosage: 2.5 MG
  2. PRADAXA [Suspect]
     Dosage: 220 MG
     Dates: start: 20110623, end: 20110623
  3. URAL [Concomitant]
     Dosage: PRN
  4. PRILOSEC [Concomitant]
     Dosage: 20 MG
  5. SPIRIVA [Concomitant]
  6. LIVOSTIN [Concomitant]
     Dosage: PRN
  7. PRADAXA [Suspect]
     Indication: ATRIAL FIBRILLATION
     Dosage: 300 MG
     Dates: start: 20110620, end: 20110622
  8. SPIRACTIN [Concomitant]
     Dosage: 25 MG
  9. MYSOLINE [Concomitant]
  10. FUROSEMIDE [Concomitant]
     Dosage: 40 MG
  11. DENCORUB ICE GEL [Concomitant]
     Dosage: PRN
  12. LIPITOR [Concomitant]
     Dosage: 20 MG
  13. SERETIDE ACCUHALER [Concomitant]
     Dosage: 250/50
  14. AVAPRO [Concomitant]
     Dosage: 150 MG

REACTIONS (5)
  - NAUSEA [None]
  - CONSTIPATION [None]
  - ABDOMINAL PAIN LOWER [None]
  - DIZZINESS [None]
  - GASTROOESOPHAGEAL REFLUX DISEASE [None]
